FAERS Safety Report 7814814-9 (Version None)
Quarter: 2011Q4

REPORT INFORMATION
  Report Type: 
  Country: None (occurrence: None)
  Receive Date: 20111014
  Receipt Date: 20110929
  Transmission Date: 20120403
  Serious: Yes (Other)
  Sender: FDA-Public Use
  Company Number: PHHY2011BR86820

PATIENT
  Age: 52 Year
  Sex: Male
  Weight: 90 kg

DRUGS (3)
  1. DIOVAN [Suspect]
  2. METFORMIN HYDROCHLORIDE [Suspect]
     Dosage: 50 MG, UNK
  3. HYDROCHLOROTHIAZIDE [Suspect]

REACTIONS (5)
  - BODY MASS INDEX INCREASED [None]
  - MICROALBUMINURIA [None]
  - HYPERTENSION [None]
  - DIABETES MELLITUS [None]
  - BLOOD PRESSURE FLUCTUATION [None]
